FAERS Safety Report 4718935-9 (Version None)
Quarter: 2005Q3

REPORT INFORMATION
  Report Type: 
  Country: None (occurrence: None)
  Receive Date: 20050720
  Receipt Date: 20050705
  Transmission Date: 20060218
  Serious: Yes (Other)
  Sender: FDA-Public Use
  Company Number: DE-2005-009422

PATIENT
  Sex: Female

DRUGS (1)
  1. MIRENA [Suspect]
     Dosage: 20 UG/DAY, CONT, INTRA-UTERINE
     Route: 015
     Dates: start: 20000701

REACTIONS (10)
  - ALOPECIA [None]
  - DANDRUFF [None]
  - DIABETES MELLITUS [None]
  - HAIR TEXTURE ABNORMAL [None]
  - HYPERTENSION [None]
  - MUSCULOSKELETAL PAIN [None]
  - PSORIASIS [None]
  - PSORIATIC ARTHROPATHY [None]
  - SKIN DISORDER [None]
  - WEIGHT INCREASED [None]
